FAERS Safety Report 6782855-9 (Version None)
Quarter: 2010Q2

REPORT INFORMATION
  Report Type: 
  Country: None (occurrence: None)
  Receive Date: 20100617
  Receipt Date: 20091117
  Transmission Date: 20101027
  Serious: Yes (Disabling)
  Sender: FDA-Public Use
  Company Number: APP200900324

PATIENT
  Age: 51 Year
  Sex: Male

DRUGS (7)
  1. SENSORCAINE [Suspect]
     Indication: MUSCULOSKELETAL PAIN
     Dosage: 250 ML, CONTINUOUS VIA PUMP, INTRA-ARTICULAR, 30 ML X 11 COUNTINOUS VIA PUMP, INTRA-ARTICULAR
     Route: 014
     Dates: start: 20030407
  2. SENSORCAINE [Suspect]
     Indication: MUSCULOSKELETAL PAIN
     Dosage: 250 ML, CONTINUOUS VIA PUMP, INTRA-ARTICULAR, 30 ML X 11 COUNTINOUS VIA PUMP, INTRA-ARTICULAR
     Route: 014
     Dates: start: 20030731
  3. I-FLOW PAIN PUMP [Suspect]
     Indication: MUSCULOSKELETAL PAIN
     Dosage: 250 ML, CONTANOUS VIA
     Dates: start: 20030407
  4. STRYKER PAIN PUMP [Suspect]
     Indication: MUSCULOSKELETAL PAIN
     Dates: start: 20030731
  5. SODIUM CHLORIDE 0.9% [Concomitant]
  6. MARCAINE HYDROCHLORIDE W/ EPINEPHRINE [Concomitant]
  7. ANCEF [Concomitant]

REACTIONS (8)
  - CHONDROLYSIS [None]
  - FALL [None]
  - IMPAIRED WORK ABILITY [None]
  - JOINT RANGE OF MOTION DECREASED [None]
  - MUSCULOSKELETAL PAIN [None]
  - OSTEOARTHRITIS [None]
  - ROAD TRAFFIC ACCIDENT [None]
  - SCAPULA FRACTURE [None]
